FAERS Safety Report 7632674-6 (Version None)
Quarter: 2011Q3

REPORT INFORMATION
  Report Type: 
  Country: None (occurrence: None)
  Receive Date: 20110725
  Receipt Date: 20101129
  Transmission Date: 20111222
  Serious: No
  Sender: FDA-Public Use
  Company Number: US-BRISTOL-MYERS SQUIBB COMPANY-15399835

PATIENT
  Sex: Male

DRUGS (6)
  1. ASPIRIN [Suspect]
     Dosage: 1 DF: 325 UNIT NOS
  2. TAMSULOSIN HCL [Concomitant]
  3. SIMVASTATIN [Concomitant]
  4. FINASTERIDE [Concomitant]
  5. COUMADIN [Suspect]
     Indication: ATRIAL FIBRILLATION
     Dosage: STOPPED 15 YRS AGO
  6. METOPROLOL TARTRATE [Concomitant]
     Dosage: METOPROLOL XR 1 DF: 100 UNIT NOS

REACTIONS (1)
  - EPISTAXIS [None]
